FAERS Safety Report 17545639 (Version 2)
Quarter: 2020Q2

REPORT INFORMATION
  Report Type: Report from Study
  Country: None (occurrence: CO)
  Receive Date: 20200316
  Receipt Date: 20200403
  Transmission Date: 20200713
  Serious: Yes (Hospitalization, Other)
  Sender: FDA-Public Use
  Company Number: CO-ABBVIE-20K-036-3320934-00

PATIENT
  Sex: Female
  Weight: 70 kg

DRUGS (4)
  1. HUMIRA [Suspect]
     Active Substance: ADALIMUMAB
     Indication: PRODUCT USED FOR UNKNOWN INDICATION
     Route: 058
     Dates: start: 20091007
  2. METHOTREXATE. [Suspect]
     Active Substance: METHOTREXATE
     Indication: RHEUMATOID ARTHRITIS
     Route: 048
     Dates: start: 2009, end: 202003
  3. HUMIRA [Suspect]
     Active Substance: ADALIMUMAB
     Indication: RHEUMATOID ARTHRITIS
     Route: 058
     Dates: end: 20200309
  4. NATURAL PRODUCT WITH CALENDULA (CALENDULA OFFICINALIS) [Suspect]
     Active Substance: HERBALS\HOMEOPATHICS
     Indication: RHEUMATOID ARTHRITIS
     Route: 048
     Dates: start: 2019, end: 2019

REACTIONS (7)
  - Abdominal pain upper [Recovering/Resolving]
  - Drug hypersensitivity [Recovering/Resolving]
  - Anaphylactic shock [Recovering/Resolving]
  - Hypertension [Recovered/Resolved]
  - Joint swelling [Recovering/Resolving]
  - Arthralgia [Recovering/Resolving]
  - Hypertension [Recovering/Resolving]

NARRATIVE: CASE EVENT DATE: 2009
